FAERS Safety Report 20804014 (Version 1)
Quarter: 2022Q2

REPORT INFORMATION
  Report Type: Report from Study
  Country: US (occurrence: US)
  Receive Date: 20220509
  Receipt Date: 20220509
  Transmission Date: 20220720
  Serious: Yes (Hospitalization)
  Sender: FDA-Public Use
  Company Number: US-GILEAD-2022-0579962

PATIENT
  Sex: Female

DRUGS (3)
  1. AMBRISENTAN [Suspect]
     Active Substance: AMBRISENTAN
     Indication: Pulmonary arterial hypertension
     Dosage: 10 MG, QD
     Route: 048
     Dates: start: 20141024
  2. ORENITRAM [Concomitant]
     Active Substance: TREPROSTINIL
  3. TADALAFIL [Concomitant]
     Active Substance: TADALAFIL

REACTIONS (6)
  - Lip swelling [Not Recovered/Not Resolved]
  - Flushing [Unknown]
  - Swelling face [Unknown]
  - Feeling hot [Unknown]
  - Hypersensitivity [Not Recovered/Not Resolved]
  - Mouth swelling [Not Recovered/Not Resolved]
